FAERS Safety Report 20300176 (Version 1)
Quarter: 2022Q1

REPORT INFORMATION
  Report Type: Report from Study
  Country: CA (occurrence: CA)
  Receive Date: 20220105
  Receipt Date: 20220105
  Transmission Date: 20220423
  Serious: Yes (Hospitalization)
  Sender: FDA-Public Use
  Company Number: CA-OTSUKA-2021_040319

PATIENT
  Sex: Male

DRUGS (1)
  1. CEDAZURIDINE\DECITABINE [Suspect]
     Active Substance: CEDAZURIDINE\DECITABINE
     Indication: Myelodysplastic syndrome
     Dosage: 35-100 MG
     Route: 065
     Dates: start: 20211019

REACTIONS (5)
  - Emotional distress [Unknown]
  - Full blood count abnormal [Unknown]
  - Blood pressure decreased [Unknown]
  - Drug ineffective [Unknown]
  - Therapy interrupted [Unknown]
